FAERS Safety Report 21941397 (Version 1)
Quarter: 2023Q1

REPORT INFORMATION
  Report Type: Report from Study
  Country: US (occurrence: US)
  Receive Date: 20230202
  Receipt Date: 20230202
  Transmission Date: 20230418
  Serious: No
  Sender: FDA-Public Use
  Company Number: US-EXELIXIS-CABO-22054614

PATIENT
  Sex: Male

DRUGS (2)
  1. CABOMETYX [Suspect]
     Active Substance: CABOZANTINIB S-MALATE
     Indication: Renal cell carcinoma
     Dosage: 20MG TABLET EVERY OTHER DAY ALTERNATING WITH 40MG TABLET EVERY OTHER DAY
     Route: 048
  2. CABOMETYX [Suspect]
     Active Substance: CABOZANTINIB S-MALATE
     Dosage: 40 MG, DAILY FOR 3 DAYS IN A ROW, OFF FOR 1 DAY, THEN REPEAT
     Route: 048

REACTIONS (1)
  - Inappropriate schedule of product administration [Unknown]
